FAERS Safety Report 17516126 (Version 1)
Quarter: 2020Q1

REPORT INFORMATION
  Report Type: Spontaneous
  Country: US (occurrence: US)
  Receive Date: 20200227
  Receipt Date: 20200227
  Transmission Date: 20200409
  Serious: No
  Sender: FDA-Public Use
  Company Number: None

PATIENT
  Sex: Female

DRUGS (1)
  1. TASIGNA [Suspect]
     Active Substance: NILOTINIB
     Indication: ILL-DEFINED DISORDER
     Route: 048
     Dates: start: 20200131

REACTIONS (3)
  - Treatment noncompliance [None]
  - Circumstance or information capable of leading to medication error [None]
  - Electrocardiogram QT prolonged [None]
